FAERS Safety Report 9386644 (Version 4)
Quarter: 2014Q1

REPORT INFORMATION
  Report Type: Spontaneous
  Country: GB (occurrence: GB)
  Receive Date: 20130708
  Receipt Date: 20140320
  Transmission Date: 20141002
  Serious: Yes (Other)
  Sender: FDA-Public Use
  Company Number: PHFR2013GB003834

PATIENT
  Sex: Female

DRUGS (3)
  1. CLOZARIL [Suspect]
     Indication: SCHIZOPHRENIA, PARANOID TYPE
     Dosage: 350 MG, UNK
     Route: 048
     Dates: start: 20090320
  2. DOSULEPIN [Concomitant]
     Indication: DEPRESSED MOOD
     Dosage: 175 MG, UNK
     Route: 048
  3. ZOPLICONE [Concomitant]
     Indication: INSOMNIA
     Dosage: 7.5 MG, PRN
     Route: 048

REACTIONS (4)
  - Cardiac valve disease [Not Recovered/Not Resolved]
  - Left ventricular dysfunction [Unknown]
  - Echocardiogram abnormal [Unknown]
  - Aortic valve incompetence [Not Recovered/Not Resolved]
